FAERS Safety Report 9092511 (Version 1)
Quarter: 2013Q1

REPORT INFORMATION
  Report Type: Report from Study
  Country: US (occurrence: US)
  Receive Date: 20130131
  Receipt Date: 20130131
  Transmission Date: 20140127
  Serious: No
  Sender: FDA-Public Use
  Company Number: US-ABBOTT-12P-163-0992923-00

PATIENT
  Sex: Male
  Weight: 63.56 kg

DRUGS (7)
  1. HUMIRA [Suspect]
     Indication: RETINAL CYST
     Route: 058
     Dates: start: 201208
  2. UNKNOWN STEROID SEED [Concomitant]
     Indication: RETINAL CYST
     Route: 047
  3. UNSPECIFIED INGREDIENT [Concomitant]
     Indication: INTRAOCULAR PRESSURE TEST
     Route: 047
  4. UNKNOWN NON-STEROID MEDICATION [Concomitant]
     Indication: INTRAOCULAR PRESSURE TEST
     Route: 047
  5. DOXYCYCLINE [Concomitant]
     Indication: ACNE
     Dates: start: 2011
  6. CELLCEPT [Concomitant]
     Indication: RETINAL CYST
  7. CELLCEPT [Concomitant]
     Indication: INTRAOCULAR PRESSURE TEST

REACTIONS (1)
  - Off label use [Not Recovered/Not Resolved]
